FAERS Safety Report 23683843 (Version 1)
Quarter: 2024Q1

REPORT INFORMATION
  Report Type: Spontaneous
  Country: US (occurrence: None)
  Receive Date: 20240328
  Receipt Date: 20240328
  Transmission Date: 20240410
  Serious: Yes (Hospitalization)
  Sender: FDA-Public Use
  Company Number: None

PATIENT
  Age: 37 Year
  Sex: Female

DRUGS (3)
  1. SILDENAFIL CITRATE [Suspect]
     Active Substance: SILDENAFIL CITRATE
     Indication: Pulmonary arterial hypertension
     Dosage: 40MG 3 TIME DAILY ORAL
     Route: 048
     Dates: start: 202105
  2. OPSUMIT [Concomitant]
     Active Substance: MACITENTAN
  3. TYVASO [Concomitant]
     Active Substance: TREPROSTINIL

REACTIONS (2)
  - COVID-19 [None]
  - Pneumonia [None]

NARRATIVE: CASE EVENT DATE: 20240227
